FAERS Safety Report 6676264-0 (Version None)
Quarter: 2010Q2

REPORT INFORMATION
  Report Type: 
  Country: None (occurrence: None)
  Receive Date: 20100412
  Receipt Date: 20100329
  Transmission Date: 20101027
  Serious: Yes (Other)
  Sender: FDA-Public Use
  Company Number: FR-AMGEN-US332484

PATIENT
  Sex: Female
  Weight: 85 kg

DRUGS (6)
  1. ENBREL [Suspect]
     Indication: RHEUMATOID ARTHRITIS
     Route: 058
     Dates: start: 20080430, end: 20100101
  2. BI-PROFENID [Concomitant]
     Dosage: 300 MG TOTAL DAILY
     Route: 048
     Dates: start: 20060529
  3. SPECIAFOLDINE [Concomitant]
     Dosage: 10 MG TOTAL WEEKLY
     Route: 048
     Dates: start: 20060529
  4. NEXIUM [Concomitant]
     Dosage: 20 MG TOTAL DAILY
     Route: 048
     Dates: start: 20060529
  5. CORTANCYL [Concomitant]
     Dosage: 5 MG TOTAL DAILY
     Route: 048
     Dates: start: 20060529
  6. NOVATREX [Concomitant]
     Dosage: 15 MG TOTAL WEEKLY
     Route: 048
     Dates: start: 20060529

REACTIONS (5)
  - BREAST CANCER [None]
  - CONDITION AGGRAVATED [None]
  - FATIGUE [None]
  - MEMORY IMPAIRMENT [None]
  - RHEUMATOID ARTHRITIS [None]
